FAERS Safety Report 6567382-6 (Version None)
Quarter: 2010Q1

REPORT INFORMATION
  Report Type: 
  Country: None (occurrence: None)
  Receive Date: 20100202
  Receipt Date: 20100129
  Transmission Date: 20100710
  Serious: Yes (Life-Threatening)
  Sender: FDA-Public Use
  Company Number: PHHY2009FI54148

PATIENT
  Age: 44 Year
  Sex: Female

DRUGS (3)
  1. ZOMETA [Suspect]
     Indication: LYMPHOMA
     Dosage: UNK
     Dates: start: 20091117, end: 20091117
  2. PREDNISOLONE [Concomitant]
     Dosage: UNK
  3. CYTOTOXIC AGENTS [Concomitant]

REACTIONS (7)
  - ANAPHYLACTIC REACTION [None]
  - COUGH [None]
  - DYSPNOEA [None]
  - LARYNGOSPASM [None]
  - PALLOR [None]
  - SENSATION OF FOREIGN BODY [None]
  - THROAT TIGHTNESS [None]
